FAERS Safety Report 7928702-0 (Version None)
Quarter: 2011Q4

REPORT INFORMATION
  Report Type: 
  Country: None (occurrence: None)
  Receive Date: 20111118
  Receipt Date: 20111103
  Transmission Date: 20120403
  Serious: Yes (Hospitalization)
  Sender: FDA-Public Use
  Company Number: NO-US-EMD SERONO, INC.-7093457

PATIENT
  Sex: Male

DRUGS (1)
  1. REBIF [Suspect]
     Indication: MULTIPLE SCLEROSIS
     Route: 058
     Dates: start: 20070101, end: 20080101

REACTIONS (5)
  - CONDITION AGGRAVATED [None]
  - MULTIPLE SCLEROSIS [None]
  - PAIN [None]
  - WHEELCHAIR USER [None]
  - MONOPLEGIA [None]
